FAERS Safety Report 21237858 (Version 2)
Quarter: 2022Q4

REPORT INFORMATION
  Report Type: Other
  Country: DE (occurrence: None)
  Receive Date: 20220822
  Receipt Date: 20221209
  Transmission Date: 20230113
  Serious: No
  Sender: FDA-Public Use
  Company Number: DE-ROCHE-3159128

PATIENT
  Age: 43 Year
  Sex: Female
  Weight: 92 kg

DRUGS (5)
  1. OCRELIZUMAB [Suspect]
     Active Substance: OCRELIZUMAB
     Indication: Relapsing multiple sclerosis
     Dosage: MOST RECENT DOSE PRIOR TO AE 08/FEB/2022
     Route: 042
     Dates: start: 20220125
  2. CIPRALEX [Concomitant]
     Active Substance: ESCITALOPRAM OXALATE
     Indication: Depression
     Route: 048
  3. QUETIAPINE [Concomitant]
     Active Substance: QUETIAPINE
     Indication: Depression
     Route: 048
  4. PANTOPRAZOLE SODIUM [Concomitant]
     Active Substance: PANTOPRAZOLE SODIUM
     Route: 048
  5. GABAPENTIN [Concomitant]
     Active Substance: GABAPENTIN
     Route: 048

REACTIONS (3)
  - Skin irritation [Recovered/Resolved]
  - Dizziness [Not Recovered/Not Resolved]
  - Human papilloma virus test positive [Not Recovered/Not Resolved]

NARRATIVE: CASE EVENT DATE: 20220201
